FAERS Safety Report 13376551 (Version 1)
Quarter: 2017Q1

REPORT INFORMATION
  Report Type: Spontaneous
  Country: US (occurrence: US)
  Receive Date: 20170327
  Receipt Date: 20170327
  Transmission Date: 20170429
  Serious: Yes (Hospitalization)
  Sender: FDA-Public Use
  Company Number: None

PATIENT
  Age: 67 Year
  Sex: Female

DRUGS (16)
  1. LOVASTATIN. [Concomitant]
     Active Substance: LOVASTATIN
  2. CALCIUM [Concomitant]
     Active Substance: CALCIUM
  3. ZINC. [Concomitant]
     Active Substance: ZINC
  4. ACIPHEX [Concomitant]
     Active Substance: RABEPRAZOLE SODIUM
  5. ASA [Concomitant]
     Active Substance: ASPIRIN
  6. HCTZ AND OXYCO/APAP [Concomitant]
  7. MULTIVITAMIN [Concomitant]
     Active Substance: VITAMINS
  8. MAGNESIUM [Concomitant]
     Active Substance: MAGNESIUM
  9. RESTASIS [Concomitant]
     Active Substance: CYCLOSPORINE
  10. GLUCOPHAGE [Concomitant]
     Active Substance: METFORMIN HYDROCHLORIDE
  11. D [Concomitant]
  12. ENBREL [Suspect]
     Active Substance: ETANERCEPT
     Indication: RHEUMATOID ARTHRITIS
     Route: 058
     Dates: start: 20161013
  13. MTX [Concomitant]
     Active Substance: METHOTREXATE SODIUM
  14. DIOVAN [Concomitant]
     Active Substance: VALSARTAN
  15. NOVOLIN [Concomitant]
     Active Substance: INSULIN HUMAN
  16. FOLIC ACID. [Concomitant]
     Active Substance: FOLIC ACID

REACTIONS (2)
  - Nasopharyngitis [None]
  - Intestinal obstruction [None]

NARRATIVE: CASE EVENT DATE: 20170206
